FAERS Safety Report 5812392-7 (Version None)
Quarter: 2008Q3

REPORT INFORMATION
  Report Type: 
  Country: None (occurrence: None)
  Receive Date: 20080716
  Receipt Date: 20080704
  Transmission Date: 20090109
  Serious: Yes (Other)
  Sender: FDA-Public Use
  Company Number: BR-PFIZER INC-2008056655

PATIENT
  Sex: Female
  Weight: 100 kg

DRUGS (4)
  1. CHLORPROPAMIDE [Suspect]
     Indication: DIABETES MELLITUS
     Dosage: DAILY DOSE:1000MG
     Route: 048
  2. ALDOMET [Concomitant]
     Dosage: DAILY DOSE:250MG
     Route: 048
  3. ALDOMET [Concomitant]
     Dosage: DAILY DOSE:500MG
  4. HYGROTON [Concomitant]
     Route: 048

REACTIONS (8)
  - ABDOMINAL PAIN [None]
  - BLOOD PRESSURE ABNORMAL [None]
  - CARDIOMEGALY [None]
  - CHOLELITHIASIS [None]
  - DEPRESSION [None]
  - DIABETES MELLITUS INADEQUATE CONTROL [None]
  - INSOMNIA [None]
  - WEIGHT INCREASED [None]
